FAERS Safety Report 20353928 (Version 5)
Quarter: 2022Q4

REPORT INFORMATION
  Report Type: Report from Study
  Country: JP (occurrence: JP)
  Receive Date: 20220120
  Receipt Date: 20221102
  Transmission Date: 20230113
  Serious: Yes (Hospitalization, Other)
  Sender: FDA-Public Use
  Company Number: JP-ALXN-A202114099

PATIENT
  Age: 26 Year
  Sex: Male
  Weight: 62 kg

DRUGS (3)
  1. PREDONINE [Suspect]
     Active Substance: PREDNISOLONE
     Indication: Neuromyelitis optica spectrum disorder
     Dosage: 10 MG, QD
     Route: 048
     Dates: start: 20190330
  2. SOLIRIS [Suspect]
     Active Substance: ECULIZUMAB
     Indication: Neuromyelitis optica spectrum disorder
     Dosage: 900 MG, QW
     Route: 042
     Dates: start: 20211218, end: 20211218
  3. FAMOTIDINE [Concomitant]
     Active Substance: FAMOTIDINE
     Indication: Neuromyelitis optica spectrum disorder
     Dosage: 20 MG/DAY
     Route: 048
     Dates: start: 20211016

REACTIONS (2)
  - Bacterial sepsis [Recovered/Resolved]
  - Gonococcal infection [Recovered/Resolved]

NARRATIVE: CASE EVENT DATE: 20211220
